FAERS Safety Report 9844433 (Version 2)
Quarter: 2014Q1

REPORT INFORMATION
  Report Type: Spontaneous
  Country: FR (occurrence: None)
  Receive Date: 20140123
  Receipt Date: 20140127
  Transmission Date: 20141002
  Serious: Yes (Hospitalization)
  Sender: FDA-Public Use
  Company Number: 2014AP000119

PATIENT
  Age: 32 Year
  Sex: Female
  Weight: 72 kg

DRUGS (5)
  1. FERRIPROX [Suspect]
     Indication: CONGENITAL APLASTIC ANAEMIA
     Route: 048
     Dates: start: 20110703, end: 20111021
  2. DESFERAL [Concomitant]
  3. LEVOTHYROXINE [Concomitant]
  4. ESTRAVAL [Concomitant]
  5. UTROGESTAN [Concomitant]

REACTIONS (4)
  - Agranulocytosis [None]
  - Oropharyngeal pain [None]
  - Underdose [None]
  - Pyrexia [None]
